FAERS Safety Report 9024307 (Version 1)
Quarter: 2013Q1

REPORT INFORMATION
  Report Type: Spontaneous
  Country: BR (occurrence: BR)
  Receive Date: 20130121
  Receipt Date: 20130121
  Transmission Date: 20140127
  Serious: Yes (Other)
  Sender: FDA-Public Use
  Company Number: PHHY2012BR067541

PATIENT
  Age: 75 Year
  Sex: Female

DRUGS (2)
  1. FORASEQ [Suspect]
     Indication: WHEEZING
     Dosage: TWICE A DAY
     Dates: start: 2005
  2. FORASEQ [Suspect]
     Dosage: UNK UKN, UNK
     Dates: start: 20120727

REACTIONS (11)
  - Bone disorder [Not Recovered/Not Resolved]
  - Bone pain [Not Recovered/Not Resolved]
  - Lung disorder [Not Recovered/Not Resolved]
  - Memory impairment [Not Recovered/Not Resolved]
  - Pain in extremity [Not Recovered/Not Resolved]
  - Arthralgia [Not Recovered/Not Resolved]
  - Back pain [Not Recovered/Not Resolved]
  - Fatigue [Not Recovered/Not Resolved]
  - Wheezing [Not Recovered/Not Resolved]
  - Local swelling [Not Recovered/Not Resolved]
  - Muscle spasms [Not Recovered/Not Resolved]
